FAERS Safety Report 7598144-9 (Version None)
Quarter: 2011Q3

REPORT INFORMATION
  Report Type: 
  Country: None (occurrence: None)
  Receive Date: 20110708
  Receipt Date: 20110706
  Transmission Date: 20111222
  Serious: Yes (Hospitalization)
  Sender: FDA-Public Use
  Company Number: US-BRISTOL-MYERS SQUIBB COMPANY-15863418

PATIENT
  Age: 60 Year
  Sex: Male

DRUGS (1)
  1. YERVOY [Suspect]
     Indication: METASTATIC MALIGNANT MELANOMA
     Dosage: FIRST DOSE. CYCLE1 DAY 1. BATCH #:917039 EXP:AUG13
     Route: 042
     Dates: start: 20110617

REACTIONS (3)
  - PULMONARY EMBOLISM [None]
  - HAEMATEMESIS [None]
  - COUGH [None]
